FAERS Safety Report 4395717-1 (Version None)
Quarter: 2004Q3

REPORT INFORMATION
  Report Type: 
  Country: None (occurrence: None)
  Receive Date: 20040708
  Receipt Date: 20040624
  Transmission Date: 20050211
  Serious: No
  Sender: FDA-Public Use
  Company Number: RENA-11053

PATIENT
  Age: 16 Year
  Sex: Male

DRUGS (3)
  1. RENAGEL [Suspect]
     Indication: HYPERPHOSPHATAEMIA
     Dosage: 15.2 G DAILY PO
     Route: 048
  2. RENAGEL [Suspect]
     Indication: HYPERPHOSPHATAEMIA
     Dosage: 0.8 G TID PO
     Route: 048
     Dates: start: 20031201
  3. CALCIUM CARBONATE [Concomitant]

REACTIONS (2)
  - HAEMODIALYSIS [None]
  - HYPERPHOSPHATAEMIA [None]
